FAERS Safety Report 20983482 (Version 1)
Quarter: 2022Q2

REPORT INFORMATION
  Report Type: Spontaneous
  Country: US (occurrence: US)
  Receive Date: 20220620
  Receipt Date: 20220620
  Transmission Date: 20220721
  Serious: No
  Sender: FDA-Public Use
  Company Number: US-BAUSCH-BL-2022-014949

PATIENT
  Sex: Female

DRUGS (2)
  1. XIFAXAN [Suspect]
     Active Substance: RIFAXIMIN
     Indication: Gastrointestinal bacterial overgrowth
     Route: 048
     Dates: end: 2022
  2. XIFAXAN [Suspect]
     Active Substance: RIFAXIMIN
     Indication: Off label use

REACTIONS (5)
  - Abdominal pain upper [Unknown]
  - Diarrhoea [Unknown]
  - Expired product administered [Unknown]
  - Product prescribing issue [Unknown]
  - Patient dissatisfaction with treatment [Unknown]

NARRATIVE: CASE EVENT DATE: 20220612
